FAERS Safety Report 7549964-8 (Version None)
Quarter: 2011Q2

REPORT INFORMATION
  Report Type: 
  Country: None (occurrence: None)
  Receive Date: 20110615
  Receipt Date: 20110613
  Transmission Date: 20111010
  Serious: No
  Sender: FDA-Public Use
  Company Number: US-PFIZER INC-2011128629

PATIENT
  Sex: Female

DRUGS (2)
  1. SUDAFED 12 HOUR [Suspect]
     Dosage: UNK
     Dates: start: 20060101
  2. ADVIL PM [Suspect]
     Indication: INSOMNIA
     Dosage: 2 TABLETS,DAILY
     Route: 048
     Dates: start: 20110607

REACTIONS (3)
  - OEDEMA MOUTH [None]
  - SWELLING FACE [None]
  - LIP SWELLING [None]
